FAERS Safety Report 8344684-4 (Version None)
Quarter: 2012Q2

REPORT INFORMATION
  Report Type: 
  Country: None (occurrence: None)
  Receive Date: 20120508
  Receipt Date: 20120501
  Transmission Date: 20120825
  Serious: Yes (Other)
  Sender: FDA-Public Use
  Company Number: US-GENZYME-MOZO-1000693

PATIENT

DRUGS (2)
  1. MOZOBIL [Suspect]
     Indication: HAEMATOPOIETIC STEM CELL MOBILISATION
     Dosage: 320 MCG/KG, QD, DAY 5
     Route: 042
  2. LEUKINE [Suspect]
     Indication: HAEMATOPOIETIC STEM CELL MOBILISATION
     Dosage: 5 MCG/KG, QD, DAYS 1-4
     Route: 058

REACTIONS (1)
  - GRAFT VERSUS HOST DISEASE [None]
